FAERS Safety Report 9275444 (Version 2)
Quarter: 2013Q2

REPORT INFORMATION
  Report Type: Spontaneous
  Country: US (occurrence: US)
  Receive Date: 20130507
  Receipt Date: 20130606
  Transmission Date: 20140414
  Serious: Yes (Death, Other)
  Sender: FDA-Public Use
  Company Number: US-BAYER-2013-054841

PATIENT
  Age: 41 Year
  Sex: Female
  Weight: 90 kg

DRUGS (13)
  1. YAZ [Suspect]
     Indication: ACNE
  2. YASMIN [Suspect]
  3. NYSTOP [Concomitant]
     Dosage: UNK
     Dates: start: 20110801
  4. METRONIDAZOLE [Concomitant]
     Dosage: UNK
     Dates: start: 20110801
  5. CICLOPIROX [Concomitant]
     Dosage: UNK
     Dates: start: 20110801
  6. ACETIC ACID [Concomitant]
     Dosage: UNK
     Dates: start: 20110801
  7. LEVOTHYROXINE SODIUM [Concomitant]
     Dosage: UNK
     Dates: start: 20110801
  8. LORATADINE [Concomitant]
     Dosage: UNK
     Dates: start: 20110801
  9. TRIAMCINOLONE ACETONIDE [Concomitant]
     Dosage: UNK
     Dates: start: 20110801
  10. OMEPRAZOLE [Concomitant]
     Dosage: UNK
     Dates: start: 20110801
  11. FLOVENT HFA [Concomitant]
     Dosage: UNK
     Dates: start: 20110801
  12. JOLESSA [Concomitant]
     Dosage: UNK
     Dates: start: 20110419, end: 20110923
  13. DOVONEX [Concomitant]
     Dosage: UNK
     Dates: start: 20110801

REACTIONS (8)
  - Pulmonary embolism [Fatal]
  - Deep vein thrombosis [Fatal]
  - Right ventricular hypertrophy [None]
  - Hepatic congestion [None]
  - Hepatic steatosis [None]
  - Pain [Fatal]
  - Pain [Fatal]
  - Injury [Fatal]
